FAERS Safety Report 5595172-X (Version None)
Quarter: 2008Q1

REPORT INFORMATION
  Report Type: 
  Country: None (occurrence: None)
  Receive Date: 20080117
  Receipt Date: 20080110
  Transmission Date: 20080703
  Serious: Yes (Hospitalization)
  Sender: FDA-Public Use
  Company Number: US-PFIZER INC-2008003518

PATIENT
  Age: 74 Year
  Sex: Female

DRUGS (1)
  1. XANAX [Suspect]

REACTIONS (2)
  - BLOOD PRESSURE INCREASED [None]
  - MENTAL DISORDER [None]
